FAERS Safety Report 10684462 (Version 11)
Quarter: 2016Q2

REPORT INFORMATION
  Report Type: Report from Study
  Country: CA (occurrence: CA)
  Receive Date: 20141231
  Receipt Date: 20160628
  Transmission Date: 20160815
  Serious: Yes (Other)
  Sender: FDA-Public Use
  Company Number: PHHY2013CA109032

PATIENT
  Age: 35 Year
  Sex: Female

DRUGS (10)
  1. SANDOSTATIN LAR DEPOT [Suspect]
     Active Substance: OCTREOTIDE ACETATE
     Indication: GASTRINOMA
     Dosage: 40 MG, QMO (ONCE A MONTH )
     Route: 030
     Dates: start: 20130623, end: 20150316
  2. HYDROCORTISONE. [Concomitant]
     Active Substance: HYDROCORTISONE
     Dosage: 20 MG (15 MG MORNING, 5 MG BEDTIME), UNK
     Route: 065
     Dates: start: 20140618
  3. SANDOSTATIN [Suspect]
     Active Substance: OCTREOTIDE ACETATE
     Indication: GASTRINOMA
     Dosage: UNK UG, ONCE/SINGLE
     Route: 058
     Dates: start: 20130607, end: 20130607
  4. HYDROCORTISONE. [Concomitant]
     Active Substance: HYDROCORTISONE
     Dosage: 15 MG (10 MG EVERY MORNING AND 5 MG EVERY EVENING), UNK
     Route: 065
     Dates: start: 20150113
  5. METFORMIN [Concomitant]
     Active Substance: METFORMIN HYDROCHLORIDE
     Indication: PRODUCT USED FOR UNKNOWN INDICATION
     Dosage: 500 MG, BID
     Route: 065
  6. MEFENAMIC [Concomitant]
     Active Substance: MEFENAMIC ACID
     Indication: PRODUCT USED FOR UNKNOWN INDICATION
     Dosage: 25 MG, TID
     Route: 065
     Dates: start: 20140523
  7. HYDROCORTISONE. [Concomitant]
     Active Substance: HYDROCORTISONE
     Indication: PRODUCT USED FOR UNKNOWN INDICATION
     Route: 065
  8. RAMIPRIL. [Concomitant]
     Active Substance: RAMIPRIL
     Indication: PRODUCT USED FOR UNKNOWN INDICATION
     Route: 065
  9. METFORMIN [Concomitant]
     Active Substance: METFORMIN HYDROCHLORIDE
     Dosage: 1000 MG, BID
     Route: 065
  10. SANDOSTATIN LAR DEPOT [Suspect]
     Active Substance: OCTREOTIDE ACETATE
     Dosage: 40 MG, QMO
     Route: 030

REACTIONS (31)
  - Subcutaneous abscess [Unknown]
  - Fungal infection [Recovered/Resolved]
  - Pharyngitis [Unknown]
  - Nasal congestion [Unknown]
  - Diarrhoea [Not Recovered/Not Resolved]
  - Vomiting [Unknown]
  - Pain [Unknown]
  - Blood glucose increased [Unknown]
  - Mouth breathing [Unknown]
  - Erythema [Unknown]
  - Abscess limb [Unknown]
  - Nausea [Unknown]
  - Asthenia [Recovered/Resolved]
  - Blood glucose decreased [Unknown]
  - Arthropod bite [Unknown]
  - Skin burning sensation [Unknown]
  - Malaise [Unknown]
  - Fatigue [Unknown]
  - Abdominal pain [Unknown]
  - Headache [Unknown]
  - Nephrolithiasis [Unknown]
  - Lethargy [Unknown]
  - Pyrexia [Unknown]
  - Cough [Unknown]
  - Weight bearing difficulty [Unknown]
  - Abdominal pain upper [Unknown]
  - Arthralgia [Not Recovered/Not Resolved]
  - Blood pressure diastolic decreased [Unknown]
  - Breast mass [Unknown]
  - Constipation [Not Recovered/Not Resolved]
  - Decreased appetite [Unknown]

NARRATIVE: CASE EVENT DATE: 2014
